FAERS Safety Report 4324676-2 (Version None)
Quarter: 2004Q1

REPORT INFORMATION
  Report Type: 
  Country: None (occurrence: None)
  Receive Date: 20040325
  Receipt Date: 20040325
  Transmission Date: 20041129
  Serious: Yes (Life-Threatening, Hospitalization)
  Sender: FDA-Public Use
  Company Number: None

PATIENT
  Age: 52 Year
  Sex: Male
  Weight: 100.2 kg

DRUGS (13)
  1. TORADOL [Suspect]
  2. KETOROLAC TROMETHAMINE [Concomitant]
  3. MONTELUKAST NA [Concomitant]
  4. DM 10/GUAIPEHNIEN [Concomitant]
  5. KETOROLAC TROMETHAMINE [Concomitant]
  6. CODEINE [Concomitant]
  7. OMEPRAZOLE [Concomitant]
  8. ATENOLOL [Concomitant]
  9. ALBUTEROL [Concomitant]
  10. TRAZODONE HCL [Concomitant]
  11. MULTIVITAMINS/ZINC (CENTRUM) [Concomitant]
  12. FERROUS SULFATE TAB [Concomitant]
  13. ALPRAZOLAM [Concomitant]

REACTIONS (1)
  - CONVULSION [None]
